FAERS Safety Report 7118098-9 (Version None)
Quarter: 2010Q4

REPORT INFORMATION
  Report Type: 
  Country: None (occurrence: None)
  Receive Date: 20101123
  Receipt Date: 20101111
  Transmission Date: 20110411
  Serious: No
  Sender: FDA-Public Use
  Company Number: US-PFIZER INC-2010122574

PATIENT
  Sex: Male
  Weight: 83.9 kg

DRUGS (7)
  1. NEURONTIN [Suspect]
     Indication: NEUROPATHY PERIPHERAL
     Dosage: 100 MG, 1X/DAY
     Route: 048
     Dates: start: 20100920
  2. NEURONTIN [Suspect]
     Indication: PRURITUS
     Dosage: 300 MG 1 OR 2 AT BEDTIME
  3. NEURONTIN [Suspect]
     Indication: DIABETIC NEUROPATHY
  4. LOVAZA [Suspect]
     Dosage: UNK
  5. NIACIN [Suspect]
     Dosage: UNK
  6. VALSARTAN [Concomitant]
     Indication: HYPERTENSION
     Dosage: UNK
  7. LOPID [Concomitant]
     Indication: BLOOD TRIGLYCERIDES INCREASED
     Dosage: UNK

REACTIONS (2)
  - BLOOD GLUCOSE INCREASED [None]
  - PRURITUS [None]
